FAERS Safety Report 8737366 (Version 3)
Quarter: 2012Q4

REPORT INFORMATION
  Report Type: 
  Country: PL (occurrence: PL)
  Receive Date: 20120822
  Receipt Date: 20121016
  Transmission Date: 20130627
  Serious: Yes (Other)
  Sender: FDA-Public Use
  Company Number: PL-PFIZER INC-2012195370

PATIENT
  Sex: Female

DRUGS (3)
  1. ZETAMAX [Suspect]
     Dosage: 2 g, UNK
  2. METOCARD [Concomitant]
     Dosage: 50 UNK, UNK
  3. ACARD [Concomitant]
     Dosage: UNK

REACTIONS (5)
  - Rash macular [Recovered/Resolved]
  - Burning sensation [Recovered/Resolved]
  - Rash pruritic [Recovered/Resolved]
  - Asthenia [Recovered/Resolved]
  - Pruritus [Recovered/Resolved]
